FAERS Safety Report 8388436-8 (Version None)
Quarter: 2012Q2

REPORT INFORMATION
  Report Type: 
  Country: None (occurrence: None)
  Receive Date: 20120525
  Receipt Date: 20120517
  Transmission Date: 20120825
  Serious: Yes (Hospitalization)
  Sender: FDA-Public Use
  Company Number: JP-FRI-1000030589

PATIENT
  Sex: Female

DRUGS (13)
  1. MEMANTINE HCL [Suspect]
     Dosage: 10 MG
     Route: 048
     Dates: start: 20120419, end: 20120425
  2. MEMANTINE HCL [Suspect]
     Dosage: 15 MG
     Route: 048
     Dates: start: 20120426, end: 20120501
  3. RABEPRAZOLE SODIUM [Concomitant]
     Indication: GASTROOESOPHAGEAL REFLUX DISEASE
     Dosage: 10 MG
     Route: 048
  4. EXFORGE [Concomitant]
     Indication: HYPERTENSION
     Route: 048
  5. ONEALFA [Concomitant]
     Indication: OSTEOPOROSIS
     Dosage: 0.5 MCG
     Route: 048
  6. MAGMITT [Concomitant]
  7. MEMANTINE HCL [Suspect]
     Dosage: 20 MG
     Route: 048
     Dates: start: 20120502, end: 20120509
  8. SELBEX [Concomitant]
     Indication: GASTRITIS
     Dosage: 150 MG
     Route: 048
  9. MEMANTINE HCL [Suspect]
     Indication: DEMENTIA ALZHEIMER'S TYPE
     Dosage: 5 MG
     Route: 048
     Dates: start: 20120412, end: 20120418
  10. PLAVIX [Concomitant]
     Indication: NERVOUS SYSTEM DISORDER
     Dosage: 75 MG
     Route: 048
  11. EPADEL [Concomitant]
     Indication: HYPERLIPIDAEMIA
     Dosage: 1800 MG
     Route: 048
  12. LOXONIN [Concomitant]
     Indication: HEADACHE
     Route: 048
  13. BEHYD-RA [Concomitant]
     Indication: HYPERTENSION
     Route: 048

REACTIONS (5)
  - HEADACHE [None]
  - LOSS OF CONSCIOUSNESS [None]
  - EXTRASYSTOLES [None]
  - DECREASED APPETITE [None]
  - CONSTIPATION [None]
